FAERS Safety Report 5639322-5 (Version None)
Quarter: 2008Q1

REPORT INFORMATION
  Report Type: 
  Country: None (occurrence: None)
  Receive Date: 20080226
  Receipt Date: 20080219
  Transmission Date: 20080703
  Serious: Yes (Other)
  Sender: FDA-Public Use
  Company Number: US-ALLERGAN-0802021US

PATIENT
  Sex: Female

DRUGS (5)
  1. BOTOX [Suspect]
     Indication: DYSPHAGIA
     Dosage: 80 UNITS, SINGLE
     Route: 030
     Dates: start: 20080130, end: 20080130
  2. SYNTHROID [Concomitant]
  3. LUNESTA [Concomitant]
  4. PROZAC [Concomitant]
  5. ESTROGENS CONJUGATED W/PROGESTERONE [Concomitant]

REACTIONS (1)
  - BRONCHIAL DISORDER [None]
